FAERS Safety Report 8133827-3 (Version None)
Quarter: 2012Q1

REPORT INFORMATION
  Report Type: 
  Country: None (occurrence: None)
  Receive Date: 20120213
  Receipt Date: 20120213
  Transmission Date: 20120608
  Serious: Yes (Life-Threatening)
  Sender: FDA-Public Use
  Company Number: None

PATIENT
  Age: 64 Year
  Sex: Female
  Weight: 77.564 kg

DRUGS (2)
  1. AGGRENOX [Suspect]
     Indication: CEREBRAL THROMBOSIS
     Dosage: I CAPSULE
     Route: 048
     Dates: start: 20061220, end: 20120212
  2. AGGRENOX [Suspect]
     Indication: PROPHYLAXIS
     Dosage: I CAPSULE
     Route: 048
     Dates: start: 20061220, end: 20120212

REACTIONS (3)
  - PULMONARY HYPERTENSION [None]
  - PRODUCT EXPIRATION DATE ISSUE [None]
  - PULMONARY EMBOLISM [None]
